FAERS Safety Report 7459812-2 (Version None)
Quarter: 2011Q2

REPORT INFORMATION
  Report Type: 
  Country: None (occurrence: None)
  Receive Date: 20110505
  Receipt Date: 20110501
  Transmission Date: 20111010
  Serious: Yes (Hospitalization)
  Sender: FDA-Public Use
  Company Number: US-B.I. PHARMACEUTICALS,INC./RIDGEFIELD-2011-BP-12238BP

PATIENT

DRUGS (2)
  1. ASPIRIN [Concomitant]
     Indication: CORONARY ARTERY DISEASE
  2. PRADAXA [Suspect]
     Indication: ATRIAL FIBRILLATION
     Dosage: 300 MG

REACTIONS (3)
  - SEPSIS [None]
  - CATHETER SITE HAEMORRHAGE [None]
  - URINARY TRACT INFECTION [None]
